FAERS Safety Report 22284747 (Version 2)
Quarter: 2023Q2

REPORT INFORMATION
  Report Type: Spontaneous
  Country: US (occurrence: US)
  Receive Date: 20230504
  Receipt Date: 20230626
  Transmission Date: 20230722
  Serious: No
  Sender: FDA-Public Use
  Company Number: US-SA-SAC20230427000651

PATIENT
  Sex: Male

DRUGS (3)
  1. DUPIXENT [Suspect]
     Active Substance: DUPILUMAB
     Indication: Dermatitis atopic
     Dosage: 200 MG, QOW
     Route: 058
     Dates: start: 20211214
  2. DUOBRII [Concomitant]
     Active Substance: HALOBETASOL PROPIONATE\TAZAROTENE
     Dosage: UNK
  3. PIMECROLIMUS [Concomitant]
     Active Substance: PIMECROLIMUS
     Dosage: UNK

REACTIONS (4)
  - Dermatitis atopic [Unknown]
  - Rash [Recovered/Resolved]
  - Eczema [Not Recovered/Not Resolved]
  - Perioral dermatitis [Not Recovered/Not Resolved]
